FAERS Safety Report 5570074-3 (Version None)
Quarter: 2007Q4

REPORT INFORMATION
  Report Type: 
  Country: None (occurrence: None)
  Receive Date: 20071214
  Receipt Date: 20071129
  Transmission Date: 20080405
  Serious: Yes (Hospitalization)
  Sender: FDA-Public Use
  Company Number: S07-FRA-06192-01

PATIENT
  Age: 86 Year
  Sex: Female

DRUGS (8)
  1. CITALOPRAM HYDROBROMIDE [Suspect]
     Indication: DEPRESSION
     Dates: start: 20070501, end: 20070515
  2. SOTALOL HCL [Concomitant]
  3. AMLODIPINE BESYLATE [Concomitant]
  4. ASPIRIN [Concomitant]
  5. TANAKAN (GINKGO BILOBA EXTRACT) [Concomitant]
  6. GELUPRANE (PARACETAMOL) [Concomitant]
  7. GAVISCON [Concomitant]
  8. AERIUS (DESLORATADINE) [Concomitant]

REACTIONS (3)
  - ANOREXIA [None]
  - GENERAL PHYSICAL HEALTH DETERIORATION [None]
  - HYPONATRAEMIA [None]
